FAERS Safety Report 14663129 (Version 3)
Quarter: 2019Q2

REPORT INFORMATION
  Report Type: Report from Study
  Country: US (occurrence: US)
  Receive Date: 20180321
  Receipt Date: 20190515
  Transmission Date: 20190711
  Serious: Yes (Death)
  Sender: FDA-Public Use
  Company Number: US-KERYX BIOPHARMA UK LTD-2018US003776

PATIENT
  Age: 62 Year
  Sex: Male

DRUGS (1)
  1. AURYXIA [Suspect]
     Active Substance: TETRAFERRIC TRICITRATE DECAHYDRATE
     Indication: HYPERPHOSPHATAEMIA
     Dosage: 3 G, QD
     Route: 048
     Dates: start: 20171017

REACTIONS (1)
  - Death [Fatal]

NARRATIVE: CASE EVENT DATE: 20180310
